FAERS Safety Report 4520470-8 (Version None)
Quarter: 2004Q4

REPORT INFORMATION
  Report Type: 
  Country: None (occurrence: None)
  Receive Date: 20041203
  Receipt Date: 20041123
  Transmission Date: 20050328
  Serious: Yes (Other)
  Sender: FDA-Public Use
  Company Number: 2004097957

PATIENT
  Sex: Female
  Weight: 54.4316 kg

DRUGS (8)
  1. DIFLUCAN [Suspect]
     Indication: ILL-DEFINED DISORDER
  2. CLONAZEPAM [Suspect]
     Indication: ILL-DEFINED DISORDER
     Dosage: 12 MG, ORAL
     Route: 048
     Dates: start: 20040316
  3. CITRUS PARADISI FRUIT JUICE (CITRUS PARADISI FRUIT JUICE) [Suspect]
     Indication: ILL-DEFINED DISORDER
     Dosage: ORAL
     Route: 048
     Dates: start: 20040101, end: 20040101
  4. OXYCODONE HYDROCHLORIDE (OXYCODONE HYDROCHLORIDE) [Concomitant]
  5. ZOLPIDEM TARTRATE [Concomitant]
  6. DYAZIDE [Concomitant]
  7. PHENTERMINE [Concomitant]
  8. TIZANIDINE HCL [Concomitant]

REACTIONS (12)
  - AMNESIA [None]
  - BALANCE DISORDER [None]
  - CONVULSION [None]
  - DIZZINESS [None]
  - DRUG INTERACTION [None]
  - DYSARTHRIA [None]
  - EYE MOVEMENT DISORDER [None]
  - FALL [None]
  - FOOD INTERACTION [None]
  - FUNGAL INFECTION [None]
  - GAIT DISTURBANCE [None]
  - MEDICATION ERROR [None]
